FAERS Safety Report 10573369 (Version 1)
Quarter: 2014Q4

REPORT INFORMATION
  Report Type: Spontaneous
  Country: US (occurrence: None)
  Receive Date: 20141030
  Receipt Date: 20141030
  Transmission Date: 20150529
  Serious: Yes (Other)
  Sender: FDA-Public Use
  Company Number: PHEH2014US004196

PATIENT
  Age: 37 Year
  Sex: Female
  Weight: 142 kg

DRUGS (12)
  1. METFORMIN [Concomitant]
     Active Substance: METFORMIN HYDROCHLORIDE
  2. KLONOPIN [Concomitant]
     Active Substance: CLONAZEPAM
  3. KLOR CON (POTASSIUM CHLORIDE) [Concomitant]
  4. MAGNESIUM (MAGNESIUM) [Concomitant]
     Active Substance: MAGNESIUM
  5. ALDACTONE [Concomitant]
     Active Substance: SPIRONOLACTONE
  6. ZYRTEC [Concomitant]
     Active Substance: CETIRIZINE HYDROCHLORIDE
  7. CALCIUM (CALCIUM) [Concomitant]
     Active Substance: CALCIUM
  8. VIVELLE DOT [Suspect]
     Active Substance: ESTRADIOL
     Indication: HORMONE REPLACEMENT THERAPY
     Route: 062
     Dates: start: 20140225, end: 20140403
  9. LAMICTAL [Concomitant]
     Active Substance: LAMOTRIGINE
  10. ZOLOFT [Concomitant]
     Active Substance: SERTRALINE HYDROCHLORIDE
  11. VITAMIN D3 [Concomitant]
     Active Substance: CHOLECALCIFEROL
  12. ZINC (ZINC) [Concomitant]

REACTIONS (3)
  - Application site pruritus [None]
  - Application site rash [None]
  - Application site erythema [None]

NARRATIVE: CASE EVENT DATE: 20140228
